FAERS Safety Report 14196672 (Version 7)
Quarter: 2018Q1

REPORT INFORMATION
  Report Type: Report from Study
  Country: US (occurrence: US)
  Receive Date: 20171116
  Receipt Date: 20180228
  Transmission Date: 20180508
  Serious: Yes (Hospitalization)
  Sender: FDA-Public Use
  Company Number: US-EISAI MEDICAL RESEARCH-EC-2017-033113

PATIENT
  Age: 46 Year
  Sex: Male
  Weight: 55 kg

DRUGS (22)
  1. AMLODIPINE BESYLATE. [Concomitant]
     Active Substance: AMLODIPINE BESYLATE
  2. OXYCONTIN [Concomitant]
     Active Substance: OXYCODONE HYDROCHLORIDE
  3. METHYLPHENIDATE. [Concomitant]
     Active Substance: METHYLPHENIDATE
  4. LENVIMA [Suspect]
     Active Substance: LENVATINIB
     Route: 048
     Dates: start: 201712, end: 201801
  5. AFINITOR [Concomitant]
     Active Substance: EVEROLIMUS
  6. GENERLAC [Concomitant]
     Active Substance: LACTULOSE
  7. LIDOCAINE. [Concomitant]
     Active Substance: LIDOCAINE
  8. DRONABINOL. [Concomitant]
     Active Substance: DRONABINOL
  9. DICLOFENAC [Concomitant]
     Active Substance: DICLOFENAC
  10. LIDOCAINE-PRILOCAINE [Concomitant]
     Active Substance: LIDOCAINE\PRILOCAINE
  11. LENVIMA [Suspect]
     Active Substance: LENVATINIB
     Indication: RENAL CANCER
     Route: 048
     Dates: start: 20171103, end: 201711
  12. VITAMIN D3 [Concomitant]
     Active Substance: CHOLECALCIFEROL
  13. PANTOPRAZOLE SODIUM. [Concomitant]
     Active Substance: PANTOPRAZOLE SODIUM
  14. ONDANSETRON [Concomitant]
     Active Substance: ONDANSETRON
  15. MULTIVITAMINS [Concomitant]
     Active Substance: VITAMINS
  16. MORPHINE SULFATE. [Concomitant]
     Active Substance: MORPHINE SULFATE
  17. BACLOFEN. [Concomitant]
     Active Substance: BACLOFEN
  18. ALBUTEROL SULFATE. [Concomitant]
     Active Substance: ALBUTEROL SULFATE
  19. LENVIMA [Suspect]
     Active Substance: LENVATINIB
     Route: 048
     Dates: start: 20171113, end: 201711
  20. HYDROMORPHONE [Concomitant]
     Active Substance: HYDROMORPHONE
  21. LENVIMA [Suspect]
     Active Substance: LENVATINIB
     Route: 048
     Dates: start: 201801, end: 20180224
  22. LOVENOX [Concomitant]
     Active Substance: ENOXAPARIN SODIUM

REACTIONS (7)
  - Cough [Unknown]
  - Haemoglobin decreased [Unknown]
  - Nasopharyngitis [Unknown]
  - Blood pressure increased [Not Recovered/Not Resolved]
  - Haematochezia [Unknown]
  - Internal haemorrhage [Unknown]
  - Decreased appetite [Unknown]

NARRATIVE: CASE EVENT DATE: 201711
